FAERS Safety Report 6802049-8 (Version None)
Quarter: 2010Q2

REPORT INFORMATION
  Report Type: 
  Country: None (occurrence: None)
  Receive Date: 20100629
  Receipt Date: 20071030
  Transmission Date: 20101027
  Serious: No
  Sender: FDA-Public Use
  Company Number: US-PFIZER INC-2007070650

PATIENT
  Sex: Male
  Weight: 86.2 kg

DRUGS (9)
  1. VIAGRA [Suspect]
     Indication: ERECTILE DYSFUNCTION
     Route: 048
     Dates: start: 20070601
  2. VIAGRA [Suspect]
  3. LOTREL [Concomitant]
     Indication: HYPERTENSION
  4. FUROSEMIDE [Concomitant]
  5. ECOTRIN [Concomitant]
  6. GLIPIZIDE [Concomitant]
     Indication: DIABETES MELLITUS
  7. PREVACID [Concomitant]
     Indication: GASTROINTESTINAL DISORDER
  8. ZETIA [Concomitant]
     Indication: BLOOD CHOLESTEROL INCREASED
  9. ALL OTHER THERAPEUTIC PRODUCTS [Concomitant]
     Indication: URINARY INCONTINENCE

REACTIONS (1)
  - DRUG INEFFECTIVE [None]
